FAERS Safety Report 13301866 (Version 2)
Quarter: 2017Q1

REPORT INFORMATION
  Report Type: Spontaneous
  Country: CN (occurrence: CN)
  Receive Date: 20170307
  Receipt Date: 20170322
  Transmission Date: 20170428
  Serious: Yes (Other)
  Sender: FDA-Public Use
  Company Number: CN-PFIZER INC-2017094935

PATIENT
  Age: 47 Year
  Sex: Female

DRUGS (4)
  1. CALCIUM FOLINATE [Suspect]
     Active Substance: LEUCOVORIN CALCIUM
     Indication: COLON CANCER METASTATIC
     Dosage: 200 MG/M2, DAY 1, 2, EACH 14-DAY CYCLE
     Dates: start: 2008, end: 2008
  2. FLUOROURACIL. [Suspect]
     Active Substance: FLUOROURACIL
     Indication: COLON CANCER METASTATIC
     Dosage: 600 MG/M2, DAY 1 AND 2, 22 H CONTINUOUS INFUSION
     Dates: start: 2008, end: 2008
  3. FLUOROURACIL. [Suspect]
     Active Substance: FLUOROURACIL
     Indication: COLON CANCER METASTATIC
     Dosage: 400 MG/M2, DAY 1 AND 2 BOLUS INJECTION, EACH 14-DAY CYCLE
     Dates: start: 2008, end: 2008
  4. IRINOTECAN HCL [Suspect]
     Active Substance: IRINOTECAN HYDROCHLORIDE
     Indication: COLON CANCER METASTATIC
     Dosage: 180 MG/M2, DAY 1, EACH 14-DAY CYCLE
     Dates: start: 2008, end: 2008

REACTIONS (2)
  - Fatigue [Unknown]
  - Chest discomfort [Unknown]

NARRATIVE: CASE EVENT DATE: 2008
